FAERS Safety Report 4834531-7 (Version None)
Quarter: 2005Q4

REPORT INFORMATION
  Report Type: 
  Country: None (occurrence: None)
  Receive Date: 20051122
  Receipt Date: 20050209
  Transmission Date: 20060501
  Serious: No
  Sender: FDA-Public Use
  Company Number: US-BRISTOL-MYERS SQUIBB COMPANY-12855532

PATIENT
  Age: 67 Year
  Sex: Female
  Weight: 72 kg

DRUGS (7)
  1. PRAVACHOL [Suspect]
  2. FOSAMAX [Concomitant]
  3. ACCUPRIL [Concomitant]
  4. INDAPAMIDE [Concomitant]
  5. NORVASC [Concomitant]
  6. VITAMINS [Concomitant]
  7. CALCIUM GLUCONATE [Concomitant]

REACTIONS (1)
  - FLATULENCE [None]
